FAERS Safety Report 6304499-5 (Version None)
Quarter: 2009Q3

REPORT INFORMATION
  Report Type: 
  Country: None (occurrence: None)
  Receive Date: 20090811
  Receipt Date: 20090729
  Transmission Date: 20100115
  Serious: No
  Sender: FDA-Public Use
  Company Number: US-ROCHE-638872

PATIENT
  Sex: Female

DRUGS (4)
  1. PEG-INTERFERON A-2A (RO 25-8310) [Suspect]
     Indication: HEPATITIS C
     Dosage: FORM: PRE FILLED SYRINGE
     Route: 065
     Dates: start: 20050101
  2. PEG-INTERFERON A-2A (RO 25-8310) [Suspect]
     Dosage: PATIENT IN WEEK-11 OF TREATMENT
     Route: 065
     Dates: start: 20090508
  3. RIBAVIRIN [Suspect]
     Indication: HEPATITIS C
     Dosage: TAKEN DAILY
     Route: 065
     Dates: start: 20050101
  4. RIBAVIRIN [Suspect]
     Dosage: PATIENT IN WEEK-11 OF TREATMENT
     Route: 065
     Dates: start: 20090508

REACTIONS (9)
  - ABDOMINAL DISCOMFORT [None]
  - CRYING [None]
  - DEPRESSED MOOD [None]
  - DEPRESSION [None]
  - ILL-DEFINED DISORDER [None]
  - NAUSEA [None]
  - NEGATIVE THOUGHTS [None]
  - SOCIAL AVOIDANT BEHAVIOUR [None]
  - WHITE BLOOD CELL COUNT DECREASED [None]
